FAERS Safety Report 5455647-0 (Version None)
Quarter: 2007Q3

REPORT INFORMATION
  Report Type: 
  Country: None (occurrence: None)
  Receive Date: 20070913
  Receipt Date: 20070913
  Transmission Date: 20080115
  Serious: Yes (Life-Threatening)
  Sender: FDA-Public Use
  Company Number: None

PATIENT
  Age: 70 Year
  Sex: Female
  Weight: 75 kg

DRUGS (2)
  1. EXUBERA [Suspect]
     Indication: DIABETES MELLITUS
     Dosage: 4 3MG PACKS BREAKFAST AND LUNC SQ
     Route: 058
     Dates: start: 20070613, end: 20070910
  2. EXUBERA [Suspect]
     Indication: DIABETES MELLITUS
     Dosage: 3 3MG PACKS 1 1MG PACK DINNER SQ
     Route: 058
     Dates: start: 20070613, end: 20070910

REACTIONS (2)
  - INCORRECT DOSE ADMINISTERED [None]
  - MEDICATION ERROR [None]
